FAERS Safety Report 4554660-5 (Version None)
Quarter: 2005Q1

REPORT INFORMATION
  Report Type: 
  Country: None (occurrence: None)
  Receive Date: 20050118
  Receipt Date: 20030602
  Transmission Date: 20050727
  Serious: Yes (Disabling, Other)
  Sender: FDA-Public Use
  Company Number: CA-BRISTOL-MYERS SQUIBB COMPANY-12290243

PATIENT
  Age: 47 Year
  Sex: Female
  Weight: 55 kg

DRUGS (13)
  1. TAXOL [Suspect]
     Indication: BREAST CANCER
     Route: 042
     Dates: start: 20020624, end: 20020826
  2. ADRIAMYCIN PFS [Suspect]
     Indication: BREAST CANCER
     Dosage: 1ST DOSE = 90 MG 2ND = 80 MG 3RD = 70 MG 4TH = 60 MG
     Route: 042
     Dates: start: 20020321, end: 20020527
  3. CYCLOPHOSPHAMIDE [Concomitant]
     Route: 042
     Dates: start: 20020321, end: 20030527
  4. DEXAMETHASONE [Concomitant]
     Dosage: 10 MG FROM 21-MAR TO 27-MAY 20 MG FROM 24-JUN TO 24-AUG
     Route: 042
     Dates: start: 20020321, end: 20020824
  5. KYTRIL [Concomitant]
     Route: 048
     Dates: start: 20020321, end: 20020824
  6. RANITIDINE [Concomitant]
     Route: 042
     Dates: start: 20020624, end: 20020824
  7. DIPHENHYDRAMINE HCL [Concomitant]
     Route: 042
     Dates: start: 20020624, end: 20020824
  8. CENTRUM [Concomitant]
  9. ASPIRIN [Concomitant]
  10. RAMIPRIL [Concomitant]
  11. FUROSEMIDE [Concomitant]
  12. SPIRONOLACTONE [Concomitant]
  13. TAMOXIFEN CITRATE [Concomitant]

REACTIONS (14)
  - ANGER [None]
  - ANXIETY [None]
  - ARTHRALGIA [None]
  - ATRIOVENTRICULAR BLOCK [None]
  - CARDIAC FAILURE CONGESTIVE [None]
  - CARDIOMYOPATHY [None]
  - CRYING [None]
  - DEPRESSION [None]
  - ELECTROCARDIOGRAM ABNORMAL [None]
  - ELECTROCARDIOGRAM QT PROLONGED [None]
  - INSOMNIA [None]
  - MYOCARDIAL INFARCTION [None]
  - OSTEOARTHRITIS [None]
  - SLEEP APNOEA SYNDROME [None]
